FAERS Safety Report 18873965 (Version 5)
Quarter: 2021Q3

REPORT INFORMATION
  Report Type: Report from Study
  Country: JP (occurrence: JP)
  Receive Date: 20210210
  Receipt Date: 20210722
  Transmission Date: 20211014
  Serious: Yes (Death, Other)
  Sender: FDA-Public Use
  Company Number: JP-TAKEDA-2021TUS008435

PATIENT
  Age: 77 Year
  Sex: Male
  Weight: 50 kg

DRUGS (20)
  1. BORTEZOMIB. [Suspect]
     Active Substance: BORTEZOMIB
     Indication: PLASMA CELL MYELOMA
     Dosage: 1.3 MILLIGRAM/SQ. METER, QD
     Route: 065
     Dates: start: 20180227, end: 20180227
  2. DARZALEX [Suspect]
     Active Substance: DARATUMUMAB
     Indication: PLASMA CELL MYELOMA
     Dosage: 16 MILLIGRAM/KILOGRAM, QD
     Route: 041
     Dates: start: 20180227, end: 20180227
  3. PIPERACILLIN NA [Concomitant]
     Dosage: 4 GRAM, QD
     Route: 065
     Dates: start: 20180310, end: 20180315
  4. DARZALEX [Suspect]
     Active Substance: DARATUMUMAB
     Dosage: 16 MILLIGRAM/KILOGRAM, QD
     Route: 041
     Dates: start: 20180306, end: 20180306
  5. NEU?UP [Concomitant]
     Active Substance: UNSPECIFIED INGREDIENT
     Indication: PYREXIA
     Dosage: 50 MICROGRAM, QD
     Route: 065
     Dates: start: 20180309, end: 20180324
  6. BORTEZOMIB. [Suspect]
     Active Substance: BORTEZOMIB
     Dosage: 1.3 MILLIGRAM/SQ. METER, QD
     Route: 065
     Dates: start: 20180302, end: 20180302
  7. DEXAMETHASONE. [Concomitant]
     Active Substance: DEXAMETHASONE
     Indication: PLASMA CELL MYELOMA
     Dosage: 20 MILLIGRAM, QD
     Route: 065
     Dates: start: 20180227, end: 20180227
  8. DARZALEX [Suspect]
     Active Substance: DARATUMUMAB
     Dosage: 16 MILLIGRAM/KILOGRAM, QD
     Route: 041
     Dates: start: 20180313, end: 20180313
  9. PIPERACILLIN NA [Concomitant]
     Indication: NEUTROPHIL COUNT DECREASED
     Dosage: 2 GRAM, QD
     Route: 065
     Dates: start: 20180309, end: 20180309
  10. BORTEZOMIB. [Suspect]
     Active Substance: BORTEZOMIB
     Dosage: 1.3 MILLIGRAM/SQ. METER, QD
     Route: 065
     Dates: start: 20180306, end: 20180306
  11. FUROSEMIDE. [Concomitant]
     Active Substance: FUROSEMIDE
     Indication: ILEUS PARALYTIC
     Dosage: 60 MILLIGRAM, QD
     Route: 065
     Dates: start: 20180315, end: 20180321
  12. FUROSEMIDE. [Concomitant]
     Active Substance: FUROSEMIDE
     Dosage: 40 MILLIGRAM, QD
     Route: 065
     Dates: start: 20180322, end: 20180324
  13. DOPAMINE HYDROCHLORIDE. [Concomitant]
     Active Substance: DOPAMINE HYDROCHLORIDE
     Indication: PLASMA CELL MYELOMA
     Dosage: 200 MILLILITER, QD
     Route: 065
     Dates: start: 20180325, end: 20180325
  14. BORTEZOMIB. [Suspect]
     Active Substance: BORTEZOMIB
     Dosage: 1.3 MILLIGRAM/SQ. METER, QD
     Route: 065
     Dates: start: 20180309, end: 20180309
  15. DEXAMETHASONE. [Concomitant]
     Active Substance: DEXAMETHASONE
     Dosage: 20 MILLIGRAM, QD
     Route: 065
     Dates: start: 20180306, end: 20180306
  16. DEXAMETHASONE. [Concomitant]
     Active Substance: DEXAMETHASONE
     Dosage: 20 MILLIGRAM, QD
     Route: 065
     Dates: start: 20180313, end: 20180313
  17. MEROPENEM. [Concomitant]
     Active Substance: MEROPENEM
     Indication: PNEUMONIA STAPHYLOCOCCAL
     Dosage: 2 GRAM, QD
     Route: 065
     Dates: start: 20180302, end: 20180308
  18. NORADRENALINE [Concomitant]
     Active Substance: NOREPINEPHRINE
     Indication: SEPTIC SHOCK
     Dosage: 6 MILLIGRAM, QD
     Route: 065
     Dates: start: 20180316, end: 20180320
  19. LINEZOLID. [Concomitant]
     Active Substance: LINEZOLID
     Indication: PNEUMONIA STAPHYLOCOCCAL
     Dosage: 1200 MILLIGRAM, QD
     Route: 065
     Dates: start: 20180302, end: 20180315
  20. OMEGACIN [Concomitant]
     Active Substance: BIAPENEM
     Indication: PNEUMONIA STAPHYLOCOCCAL
     Dosage: 1.2 GRAM, QD
     Route: 065
     Dates: start: 20180316, end: 20180325

REACTIONS (7)
  - Pyrexia [Not Recovered/Not Resolved]
  - Pneumonia staphylococcal [Not Recovered/Not Resolved]
  - Plasma cell myeloma [Fatal]
  - Ileus paralytic [Recovering/Resolving]
  - Neutrophil count decreased [Not Recovered/Not Resolved]
  - Infusion related reaction [Not Recovered/Not Resolved]
  - Septic shock [Fatal]

NARRATIVE: CASE EVENT DATE: 20180302
